FAERS Safety Report 5962602-0 (Version None)
Quarter: 2008Q4

REPORT INFORMATION
  Report Type: 
  Country: None (occurrence: None)
  Receive Date: 20081121
  Receipt Date: 20081117
  Transmission Date: 20090506
  Serious: Yes (Other)
  Sender: FDA-Public Use
  Company Number: NO-PFIZER INC-2008097042

PATIENT
  Age: 43 Year
  Sex: Male

DRUGS (2)
  1. ATORVASTATIN CALCIUM [Suspect]
     Indication: MYOCARDIAL INFARCTION
     Dosage: DAILY DOSE:40MG
  2. PRAVASTATIN SODIUM [Suspect]

REACTIONS (2)
  - DIPLOPIA [None]
  - EYELID PTOSIS [None]
